FAERS Safety Report 17666508 (Version 1)
Quarter: 2020Q2

REPORT INFORMATION
  Report Type: Spontaneous
  Country: US (occurrence: US)
  Receive Date: 20200414
  Receipt Date: 20200414
  Transmission Date: 20200713
  Serious: Yes (Other)
  Sender: FDA-Public Use
  Company Number: None

PATIENT
  Age: 53 Year
  Sex: Male
  Weight: 55.35 kg

DRUGS (2)
  1. GAMMAPLEX [Suspect]
     Active Substance: HUMAN IMMUNOGLOBULIN G
     Indication: PROPHYLAXIS AGAINST TRANSPLANT REJECTION
     Dosage: ?          OTHER FREQUENCY:Q 2 WEEKS;?
     Route: 042
     Dates: start: 20200406, end: 20200406
  2. GAMMAPLEX [Suspect]
     Active Substance: HUMAN IMMUNOGLOBULIN G
     Indication: PROPHYLAXIS AGAINST TRANSPLANT REJECTION
     Dosage: ?          OTHER FREQUENCY:Q 2 WEEKS;?
     Route: 042
     Dates: start: 20200406

REACTIONS (2)
  - Localised infection [None]
  - Hypertension [None]

NARRATIVE: CASE EVENT DATE: 20200411
